FAERS Safety Report 7304640-1 (Version None)
Quarter: 2011Q1

REPORT INFORMATION
  Report Type: 
  Country: None (occurrence: None)
  Receive Date: 20110222
  Receipt Date: 20110214
  Transmission Date: 20110831
  Serious: Yes (Death, Hospitalization)
  Sender: FDA-Public Use
  Company Number: US-ROCHE-748494

PATIENT
  Sex: Female
  Weight: 68 kg

DRUGS (14)
  1. CAPECITABINE [Suspect]
     Route: 048
  2. ATIVAN [Concomitant]
     Dosage: PRN
     Route: 048
     Dates: start: 20101124
  3. PRILOSEC [Concomitant]
     Dosage: CDPR
     Route: 048
  4. ZOFRAN [Concomitant]
     Route: 042
  5. CYTOMEL [Concomitant]
     Route: 048
  6. COMPAZINE [Concomitant]
  7. BEVACIZUMAB [Suspect]
     Dosage: LAST DOSE PRIOR TOS AE: 20 DECEMBER 2010
     Route: 042
     Dates: start: 20101125
  8. CAPECITABINE [Suspect]
     Dosage: FREQUENCY: DAYS 1-14 (21 CYCLE)
     Route: 048
     Dates: start: 20100525
  9. COMPAZINE [Concomitant]
     Dates: start: 20101124
  10. CYTOMEL [Concomitant]
     Dosage: DISP-30, R-4
     Route: 048
     Dates: start: 20101212
  11. CARBOPLATIN [Suspect]
     Dosage: DOSE: 6 AUC , LAST DOSE PRIOR TO SAE: 20 DECEMBER 2010
     Route: 042
     Dates: start: 20101125
  12. VIVELLE [Concomitant]
     Dosage: 0.1 MG/24 HOURS
  13. BENICAR [Concomitant]
     Route: 048
  14. SYNTHROID [Concomitant]
     Route: 048

REACTIONS (8)
  - ANXIETY [None]
  - WEIGHT DECREASED [None]
  - PYREXIA [None]
  - CHILLS [None]
  - RENAL FAILURE [None]
  - REGURGITATION [None]
  - DIARRHOEA [None]
  - NAUSEA [None]
